FAERS Safety Report 8600533-8 (Version None)
Quarter: 2012Q3

REPORT INFORMATION
  Report Type: 
  Country: None (occurrence: None)
  Receive Date: 20120817
  Receipt Date: 20120816
  Transmission Date: 20120928
  Serious: Yes (Other)
  Sender: FDA-Public Use
  Company Number: US-PFIZER INC-2012201216

PATIENT
  Age: 40 Year
  Sex: Male
  Weight: 140.59 kg

DRUGS (4)
  1. ZOLOFT [Concomitant]
     Indication: DEPRESSION
     Dosage: UNK
  2. CHANTIX [Suspect]
     Dosage: 0.5 MG, 2X/DAY
     Route: 048
     Dates: start: 20120801, end: 20120816
  3. NORPACE CR [Concomitant]
     Indication: CARDIOMYOPATHY
     Dosage: UNK
  4. CHANTIX [Suspect]
     Indication: SMOKING CESSATION THERAPY
     Dosage: 0.5 MG, 1X/DAY
     Route: 048
     Dates: start: 20120809, end: 20120801

REACTIONS (1)
  - SUICIDAL IDEATION [None]
